FAERS Safety Report 4540955-8 (Version None)
Quarter: 2004Q4

REPORT INFORMATION
  Report Type: 
  Country: None (occurrence: None)
  Receive Date: 20041229
  Receipt Date: 20041210
  Transmission Date: 20050328
  Serious: Yes (Other)
  Sender: FDA-Public Use
  Company Number: DE-GLAXOSMITHKLINE-D0045448A

PATIENT
  Age: 41 Year
  Sex: Male
  Weight: 45 kg

DRUGS (2)
  1. TRIZIVIR [Suspect]
     Indication: HIV INFECTION
     Dosage: 1TAB TWICE PER DAY
     Route: 048
  2. TOPAMAX [Concomitant]
     Route: 065

REACTIONS (4)
  - DRUG INTERACTION [None]
  - EPILEPSY [None]
  - GRAND MAL CONVULSION [None]
  - SIMPLE PARTIAL SEIZURES [None]
